FAERS Safety Report 8151077-1 (Version None)
Quarter: 2012Q1

REPORT INFORMATION
  Report Type: 
  Country: None (occurrence: None)
  Receive Date: 20120220
  Receipt Date: 20120216
  Transmission Date: 20120608
  Serious: Yes (Life-Threatening)
  Sender: FDA-Public Use
  Company Number: GB-MERCK-1202GBR00111

PATIENT
  Age: 6 Year
  Sex: Male
  Weight: 25 kg

DRUGS (1)
  1. SINGULAIR [Suspect]
     Indication: ASTHMA
     Route: 048
     Dates: start: 20111014, end: 20111130

REACTIONS (6)
  - FEAR [None]
  - ANXIETY [None]
  - ABNORMAL BEHAVIOUR [None]
  - NERVOUSNESS [None]
  - INITIAL INSOMNIA [None]
  - HALLUCINATIONS, MIXED [None]
